FAERS Safety Report 16045639 (Version 3)
Quarter: 2019Q2

REPORT INFORMATION
  Report Type: Spontaneous
  Country: DE (occurrence: DE)
  Receive Date: 20190307
  Receipt Date: 20190430
  Transmission Date: 20190711
  Serious: Yes (Hospitalization, Disabling, Other)
  Sender: FDA-Public Use
  Company Number: DE-ACCORD-110995

PATIENT
  Age: 69 Year
  Sex: Female

DRUGS (4)
  1. BEVACIZUMAB. [Suspect]
     Active Substance: BEVACIZUMAB
     Indication: BREAST CANCER METASTATIC
     Dosage: 49 TREATMENT CYCLES
  2. PACLITAXEL/PACLITAXEL LIPOSOME [Suspect]
     Active Substance: PACLITAXEL
     Indication: BREAST CANCER METASTATIC
     Dosage: 49 TREATMENT CYCLES, FROM JUL-2010 140 MG/M2 EVERY 2 WEEKS TO JUN-2012.
     Dates: start: 201004, end: 201007
  3. MITOMYCIN. [Suspect]
     Active Substance: MITOMYCIN
     Indication: BREAST CANCER METASTATIC
     Dosage: AFTER LESS THAN 4 WEEKS
  4. CAPECITABINE. [Concomitant]
     Active Substance: CAPECITABINE
     Indication: BREAST CANCER METASTATIC

REACTIONS (2)
  - Atypical haemolytic uraemic syndrome [Recovered/Resolved]
  - Neuropathy peripheral [Recovering/Resolving]

NARRATIVE: CASE EVENT DATE: 201205
